FAERS Safety Report 5646259-4 (Version None)
Quarter: 2008Q1

REPORT INFORMATION
  Report Type: 
  Country: None (occurrence: None)
  Receive Date: 20080301
  Receipt Date: 20080221
  Transmission Date: 20080703
  Serious: Yes (Hospitalization)
  Sender: FDA-Public Use
  Company Number: SE-JNJFOC-20080205496

PATIENT
  Age: 60 Year
  Sex: Male

DRUGS (7)
  1. REMICADE [Suspect]
     Route: 042
  2. REMICADE [Suspect]
     Indication: RHEUMATOID ARTHRITIS
     Route: 042
  3. METHOTREXATE [Suspect]
     Indication: RHEUMATOID ARTHRITIS
     Route: 048
  4. PREDNISOLONE [Suspect]
     Indication: INTERSTITIAL LUNG DISEASE
  5. ENALAPRIL MALEATE [Concomitant]
  6. FOLACIN [Concomitant]
  7. SELOKEN [Concomitant]

REACTIONS (3)
  - ATRIAL FIBRILLATION [None]
  - DIABETES MELLITUS [None]
  - INTERSTITIAL LUNG DISEASE [None]
